FAERS Safety Report 13988466 (Version 2)
Quarter: 2019Q4

REPORT INFORMATION
  Report Type: Spontaneous
  Country: US (occurrence: US)
  Receive Date: 20170919
  Receipt Date: 20191018
  Transmission Date: 20200122
  Serious: Yes (Other)
  Sender: FDA-Public Use
  Company Number: US-PFIZER INC-2017403024

PATIENT
  Age: 63 Year
  Sex: Male

DRUGS (3)
  1. VIAGRA [Suspect]
     Active Substance: SILDENAFIL CITRATE
     Indication: ERECTILE DYSFUNCTION
     Dosage: UNK
     Route: 048
     Dates: start: 20041014, end: 20150622
  2. ALFUZOSIN [Concomitant]
     Active Substance: ALFUZOSIN
     Indication: MICTURITION DISORDER
     Dosage: UNK
     Dates: start: 2016
  3. VIAGRA [Suspect]
     Active Substance: SILDENAFIL CITRATE
     Dosage: UNK (1-2 TIMES A WEEK)
     Route: 048
     Dates: start: 1997

REACTIONS (4)
  - Squamous cell carcinoma [Unknown]
  - Actinic keratosis [Unknown]
  - Malignant melanoma [Unknown]
  - Prostate cancer [Recovered/Resolved]

NARRATIVE: CASE EVENT DATE: 20110906
